FAERS Safety Report 7086168-X (Version None)
Quarter: 2010Q4

REPORT INFORMATION
  Report Type: 
  Country: None (occurrence: None)
  Receive Date: 20101028
  Receipt Date: 20101013
  Transmission Date: 20110411
  Serious: Yes (Hospitalization)
  Sender: FDA-Public Use
  Company Number: IDA-00296

PATIENT
  Age: 65 Year
  Sex: Female

DRUGS (6)
  1. PROPRANOLOL [Suspect]
     Indication: HYPERTENSION
     Dosage: ORAL
     Route: 048
     Dates: end: 20090415
  2. HYTACAND (CANDESARTAN, HYDROCHLOROTHIAZIDE) [Suspect]
     Indication: HYPERTENSION
     Dosage: ORAL
     Route: 048
     Dates: end: 20090415
  3. LERCANIDIPINE [Suspect]
     Indication: HYPERTENSION
     Dosage: 10 MG DAILY ORAL FORMULATION: TABLET / 10 MG DAILY ORAL
     Route: 048
     Dates: end: 20090415
  4. LERCANIDIPINE [Suspect]
     Indication: HYPERTENSION
     Dosage: 10 MG DAILY ORAL FORMULATION: TABLET / 10 MG DAILY ORAL
     Route: 048
     Dates: start: 20090420
  5. RABEPRAZOLE SODIUM [Suspect]
     Indication: PRODUCT USED FOR UNKNOWN INDICATION
     Dosage: ORAL
     Route: 048
     Dates: end: 20090415
  6. ACETAMINOPHEN [Suspect]
     Indication: MIGRAINE
     Dosage: ORAL
     Route: 048
     Dates: end: 20090415

REACTIONS (1)
  - PANCREATITIS ACUTE [None]
